FAERS Safety Report 23976111 (Version 2)
Quarter: 2024Q3

REPORT INFORMATION
  Report Type: Spontaneous
  Country: DE (occurrence: DE)
  Receive Date: 20240614
  Receipt Date: 20240801
  Transmission Date: 20241017
  Serious: Yes (Hospitalization, Other)
  Sender: PFIZER
  Company Number: DE-009507513-2405DEU009373

PATIENT
  Age: 81 Year
  Sex: Male
  Weight: 75 kg

DRUGS (29)
  1. PEMETREXED [Suspect]
     Active Substance: PEMETREXED
     Indication: Bronchial carcinoma
     Dosage: UNK
     Dates: start: 202403, end: 20240418
  2. CARBOPLATIN [Suspect]
     Active Substance: CARBOPLATIN
     Indication: Bronchial carcinoma
     Dosage: 350 MG
     Dates: start: 202403, end: 20240418
  3. KEYTRUDA [Suspect]
     Active Substance: PEMBROLIZUMAB
     Indication: Bronchial carcinoma
     Dosage: 200 MG, EVERY 3 WEEKS
     Route: 042
     Dates: start: 20240328, end: 20240418
  4. KEYTRUDA [Suspect]
     Active Substance: PEMBROLIZUMAB
     Indication: Palliative care
  5. NALOXONE HYDROCHLORIDE\OXYCODONE HYDROCHLORIDE [Concomitant]
     Active Substance: NALOXONE HYDROCHLORIDE\OXYCODONE HYDROCHLORIDE
     Dosage: 10 MG
  6. NALOXONE HYDROCHLORIDE\OXYCODONE HYDROCHLORIDE [Concomitant]
     Active Substance: NALOXONE HYDROCHLORIDE\OXYCODONE HYDROCHLORIDE
     Dosage: 5 MG
  7. NALOXONE HYDROCHLORIDE\OXYCODONE HYDROCHLORIDE [Concomitant]
     Active Substance: NALOXONE HYDROCHLORIDE\OXYCODONE HYDROCHLORIDE
     Dosage: 20 MG
  8. NALOXONE HYDROCHLORIDE\OXYCODONE HYDROCHLORIDE [Concomitant]
     Active Substance: NALOXONE HYDROCHLORIDE\OXYCODONE HYDROCHLORIDE
     Dosage: 2.5 MG
  9. GRANISETRON STADA [Concomitant]
  10. PREGABALIN [Concomitant]
     Active Substance: PREGABALIN
     Dosage: IF NECESSARY INCREASE TO 50MG
  11. MCP STADA [Concomitant]
  12. METAMIZOLE [Concomitant]
     Active Substance: METAMIZOLE
     Dosage: ORAL DROPS
  13. LOPERAMID STADA [Concomitant]
  14. DULCOLAX NP [Concomitant]
     Dosage: UNK
  15. FOLIC ACID [Concomitant]
     Active Substance: FOLIC ACID
     Dosage: 5 MG (5 MILLIGRAM UNTIL THE END OF PACKAGE)
  16. PANTOPRAZOL AAA [Concomitant]
     Dosage: UNK
  17. CALCIUM CARBONATE\CHOLECALCIFEROL [Concomitant]
     Active Substance: CALCIUM CARBONATE\CHOLECALCIFEROL
     Dosage: UNK
  18. INNOHEP [Concomitant]
     Active Substance: TINZAPARIN SODIUM
     Dosage: UNK
  19. ALLOPURINOL [Concomitant]
     Active Substance: ALLOPURINOL
     Dosage: UNK
  20. EMEND [Concomitant]
     Active Substance: APREPITANT
     Dosage: 80 MG
  21. EMEND [Concomitant]
     Active Substance: APREPITANT
     Dosage: 125 MG
  22. DEXAMETHASONE [Concomitant]
     Active Substance: DEXAMETHASONE
     Dosage: UNK
  23. FORTIMEL COMPACT [Concomitant]
     Dosage: UNK
  24. POLYETHYLENE GLYCOL 3350\POTASSIUM CHLORIDE\SODIUM BICARBONATE\SODIUM [Concomitant]
     Active Substance: POLYETHYLENE GLYCOL 3350\POTASSIUM CHLORIDE\SODIUM BICARBONATE\SODIUM CHLORIDE
     Dosage: UNK
  25. HCT RATIOPHARM [Concomitant]
     Dosage: UNK
  26. OXYCODONE HYDROCHLORIDE [Concomitant]
     Active Substance: OXYCODONE HYDROCHLORIDE
     Dosage: PRN (ON DEMAND)
  27. VITAMIN B12 [Concomitant]
     Active Substance: CYANOCOBALAMIN
     Dosage: 1000 UG, CYCLIC (EVERY 3 MONTHS)
  28. SIMVASTATIN [Concomitant]
     Active Substance: SIMVASTATIN
     Dosage: UNK
  29. AMPHO-MORONAL [Concomitant]
     Active Substance: AMPHOTERICIN B
     Dosage: UNK

REACTIONS (6)
  - Leukopenia [Recovered/Resolved]
  - Haemolytic anaemia [Recovered/Resolved]
  - Immune-mediated pancytopenia [Unknown]
  - Immune thrombocytopenia [Not Recovered/Not Resolved]
  - Pulmonary embolism [Unknown]
  - Neoplasm progression [Unknown]

NARRATIVE: CASE EVENT DATE: 20240301
